FAERS Safety Report 10198623 (Version 2)
Quarter: 2014Q2

REPORT INFORMATION
  Report Type: Spontaneous
  Country: US (occurrence: US)
  Receive Date: 20140527
  Receipt Date: 20140527
  Transmission Date: 20141212
  Serious: No
  Sender: FDA-Public Use
  Company Number: US-NOVEN-13US008172

PATIENT
  Age: 15 Year
  Sex: Female

DRUGS (3)
  1. DAYTRANA [Suspect]
     Indication: ATTENTION DEFICIT/HYPERACTIVITY DISORDER
     Dosage: 15 MG, QD 2 PATCHES DAILY, CONSECUTIVE
     Route: 062
     Dates: start: 2013
  2. DAYTRANA [Suspect]
     Dosage: 30 MG, UNK
     Route: 062
  3. DAYTRANA [Suspect]
     Dosage: 20 MG, UNK

REACTIONS (6)
  - Abnormal behaviour [Not Recovered/Not Resolved]
  - Drug ineffective [Recovered/Resolved]
  - Wrong technique in drug usage process [Not Recovered/Not Resolved]
  - Incorrect drug administration duration [Unknown]
  - Product quality issue [Not Recovered/Not Resolved]
  - Drug effect increased [Not Recovered/Not Resolved]
